FAERS Safety Report 5900116-4 (Version None)
Quarter: 2008Q3

REPORT INFORMATION
  Report Type: 
  Country: None (occurrence: None)
  Receive Date: 20080926
  Receipt Date: 20080916
  Transmission Date: 20090109
  Serious: Yes (Hospitalization)
  Sender: FDA-Public Use
  Company Number: FR-WYE-H06085508

PATIENT
  Sex: Male

DRUGS (7)
  1. CORDARONE [Suspect]
     Route: 048
  2. TADENAN [Suspect]
     Indication: BENIGN PROSTATIC HYPERPLASIA
     Route: 048
  3. FLUVOXAMINE MALEATE [Suspect]
     Indication: DEPRESSION
     Route: 048
  4. TEMESTA [Suspect]
     Route: 048
     Dates: start: 20020101, end: 20080101
  5. TEMESTA [Suspect]
     Route: 048
     Dates: start: 20080101
  6. SINTROM [Suspect]
     Dosage: UNSPECIFIED
     Route: 048
     Dates: end: 20080101
  7. SINTROM [Suspect]
     Route: 048
     Dates: start: 20080101

REACTIONS (3)
  - FALL [None]
  - HEAD INJURY [None]
  - RIB FRACTURE [None]
